FAERS Safety Report 8484628-8 (Version None)
Quarter: 2012Q3

REPORT INFORMATION
  Report Type: 
  Country: None (occurrence: None)
  Receive Date: 20120703
  Receipt Date: 20120523
  Transmission Date: 20120928
  Serious: No
  Sender: FDA-Public Use
  Company Number: US-TEVA-339811USA

PATIENT
  Sex: Male
  Weight: 72.64 kg

DRUGS (5)
  1. TAPENTADOL [Concomitant]
     Dosage: 600 MILLIGRAM;
     Route: 048
  2. NUVIGIL [Suspect]
     Indication: SLEEP APNOEA SYNDROME
     Route: 048
     Dates: start: 20110101, end: 20120521
  3. OXYMORPHONE [Concomitant]
     Indication: PAIN
     Dosage: 80 MILLIGRAM;
  4. CIMETIDINE [Concomitant]
     Indication: DYSPEPSIA
     Route: 048
  5. ZOLPIDEM TARTRATE [Concomitant]
     Route: 048

REACTIONS (7)
  - SOMNOLENCE [None]
  - HEADACHE [None]
  - VOMITING [None]
  - CYSTITIS [None]
  - NAUSEA [None]
  - DYSURIA [None]
  - INFLUENZA LIKE ILLNESS [None]
